FAERS Safety Report 9751839 (Version 1)
Quarter: 2013Q4

REPORT INFORMATION
  Report Type: Spontaneous
  Country: US (occurrence: US)
  Receive Date: 20131213
  Receipt Date: 20131213
  Transmission Date: 20140711
  Serious: No
  Sender: FDA-Public Use
  Company Number: US-009507513-1312USA005535

PATIENT
  Age: 52 Year
  Sex: Male

DRUGS (2)
  1. AZASITE [Suspect]
     Indication: BLEPHARITIS
     Dosage: 1 DROP DAILY IN EACH EYE
     Route: 047
  2. ZETIA [Concomitant]

REACTIONS (3)
  - Drug dose omission [Unknown]
  - Inappropriate schedule of drug administration [Unknown]
  - Blepharitis [Unknown]
